FAERS Safety Report 10097987 (Version 2)
Quarter: 2014Q3

REPORT INFORMATION
  Report Type: Spontaneous
  Country: US (occurrence: US)
  Receive Date: 20140423
  Receipt Date: 20140729
  Transmission Date: 20150326
  Serious: No
  Sender: FDA-Public Use
  Company Number: US-009507513-1404USA005237

PATIENT
  Age: 19 Year
  Sex: Female
  Weight: 68.27 kg

DRUGS (2)
  1. NEXPLANON [Suspect]
     Active Substance: ETONOGESTREL
     Dosage: 1 STANDARD PACKAGE OF PF APPLICATION OF 1, LEFT ARM, IN THE BICIPITALIS MEDIALIS,
     Route: 059
     Dates: start: 20140331, end: 20140331
  2. NEXPLANON [Suspect]
     Active Substance: ETONOGESTREL
     Dosage: 1 STANDARD PACKAGE OF PF APPLICATION OF 1, LEFT ARM, IN THE BICIPITALIS MEDIALIS,
     Route: 059
     Dates: start: 20140331

REACTIONS (3)
  - Device difficult to use [Recovered/Resolved]
  - No adverse event [Unknown]
  - Product quality issue [Unknown]

NARRATIVE: CASE EVENT DATE: 20140331
